FAERS Safety Report 17550550 (Version 4)
Quarter: 2020Q4

REPORT INFORMATION
  Report Type: Report from Study
  Country: EG (occurrence: EG)
  Receive Date: 20200317
  Receipt Date: 20201025
  Transmission Date: 20210113
  Serious: Yes (Other)
  Sender: FDA-Public Use
  Company Number: PHHY2019EG224708

PATIENT
  Age: 62 Year
  Sex: Female

DRUGS (5)
  1. KISQALI [Suspect]
     Active Substance: RIBOCICLIB
     Dosage: 400 MG, QD
     Route: 065
  2. INSULIN [Concomitant]
     Active Substance: INSULIN NOS
     Indication: DIABETES MELLITUS
     Dosage: (40-50 UNITS/DAILY), QD
     Route: 065
     Dates: start: 2015
  3. AFINITOR [Suspect]
     Active Substance: EVEROLIMUS
     Indication: BREAST CANCER METASTATIC
     Dosage: 5 MG, QD
     Route: 048
     Dates: start: 20180620
  4. AFINITOR [Suspect]
     Active Substance: EVEROLIMUS
     Dosage: 5 MG, QD
     Route: 048
     Dates: start: 201906, end: 20190917
  5. KISQALI [Suspect]
     Active Substance: RIBOCICLIB
     Indication: BREAST CANCER METASTATIC
     Dosage: 600 MG, QD (FROM 09 MAR 2020)
     Route: 048

REACTIONS (11)
  - Condition aggravated [Not Recovered/Not Resolved]
  - Subcutaneous abscess [Recovered/Resolved]
  - Immunodeficiency [Not Recovered/Not Resolved]
  - Constipation [Not Recovered/Not Resolved]
  - Skin cancer [Not Recovered/Not Resolved]
  - Metastasis [Not Recovered/Not Resolved]
  - Product dose omission issue [Unknown]
  - White blood cell count decreased [Not Recovered/Not Resolved]
  - Drug ineffective [Not Recovered/Not Resolved]
  - Thrombosis [Unknown]
  - Skin disorder [Not Recovered/Not Resolved]

NARRATIVE: CASE EVENT DATE: 20180901
